FAERS Safety Report 9834152 (Version 3)
Quarter: 2014Q1

REPORT INFORMATION
  Report Type: Spontaneous
  Country: IT (occurrence: IT)
  Receive Date: 20140122
  Receipt Date: 20140325
  Transmission Date: 20141002
  Serious: Yes (Hospitalization)
  Sender: FDA-Public Use
  Company Number: IT-RANBAXY-2014RR-77272

PATIENT
  Age: 40 Year
  Sex: Female

DRUGS (1)
  1. AMOXICILLIN [Suspect]
     Indication: RHINITIS
     Dosage: 1 DOSAGE UNIT COMPLETE
     Route: 048
     Dates: start: 20140104, end: 20140104

REACTIONS (2)
  - Abdominal pain [Recovered/Resolved]
  - Urticaria [Recovered/Resolved]
